FAERS Safety Report 18136846 (Version 10)
Quarter: 2020Q4

REPORT INFORMATION
  Report Type: Report from Study
  Country: None (occurrence: FR)
  Receive Date: 20200812
  Receipt Date: 20201030
  Transmission Date: 20210113
  Serious: Yes (Hospitalization, Other)
  Sender: FDA-Public Use
  Company Number: FR-ABBVIE-20K-056-3516791-00

PATIENT
  Sex: Female

DRUGS (5)
  1. DUODOPA [Suspect]
     Active Substance: CARBIDOPA\LEVODOPA
     Dosage: CONTINUOUS DOSE: 3.8 ML/H
     Route: 050
     Dates: start: 20200807, end: 20200817
  2. DUODOPA [Suspect]
     Active Substance: CARBIDOPA\LEVODOPA
     Indication: PARKINSON^S DISEASE
     Route: 050
     Dates: start: 20170710
  3. DUODOPA [Suspect]
     Active Substance: CARBIDOPA\LEVODOPA
     Dosage: CONTINUOUS DOSE: 3.5 ML/H
     Route: 050
     Dates: start: 20200817, end: 2020
  4. DUODOPA [Suspect]
     Active Substance: CARBIDOPA\LEVODOPA
     Dosage: CONTINUOUS DOSE 3.8ML/H FROM 7 A.M. TO 3 P.M. AND AT 3.9ML/H FROM 3 P.M. TO 9 P.M.
     Route: 050
     Dates: start: 20200923
  5. LEVOTHYROX [Concomitant]
     Active Substance: LEVOTHYROXINE
     Indication: HYPERTHYROIDISM

REACTIONS (20)
  - Bowel movement irregularity [Unknown]
  - Constipation [Unknown]
  - Device occlusion [Recovered/Resolved]
  - Tissue infiltration [Not Recovered/Not Resolved]
  - Device issue [Unknown]
  - Stoma site discharge [Recovered/Resolved]
  - Abdominal pain [Unknown]
  - Vomiting [Unknown]
  - Stoma site extravasation [Not Recovered/Not Resolved]
  - Stoma site discharge [Not Recovered/Not Resolved]
  - Blood pressure increased [Not Recovered/Not Resolved]
  - Gastrointestinal disorder [Unknown]
  - Abdominal distension [Unknown]
  - Adverse food reaction [Unknown]
  - Hypernatraemia [Unknown]
  - Cardiac failure [Recovering/Resolving]
  - Fall [Not Recovered/Not Resolved]
  - Arrhythmia [Unknown]
  - Peritonitis [Recovering/Resolving]
  - Device use issue [Unknown]

NARRATIVE: CASE EVENT DATE: 2020
